FAERS Safety Report 5958935-4 (Version None)
Quarter: 2008Q4

REPORT INFORMATION
  Report Type: 
  Country: None (occurrence: None)
  Receive Date: 20081107
  Receipt Date: 20081021
  Transmission Date: 20090506
  Serious: Yes (Hospitalization)
  Sender: FDA-Public Use
  Company Number: WSDF_00756

PATIENT
  Age: 65 Year
  Sex: Male
  Weight: 81.8 kg

DRUGS (12)
  1. WINRHO [Suspect]
     Indication: IDIOPATHIC THROMBOCYTOPENIC PURPURA
     Dosage: 51.2 UG/KG ONCE IV
     Route: 042
     Dates: start: 20080924, end: 20080924
  2. WINRHO [Suspect]
     Indication: IDIOPATHIC THROMBOCYTOPENIC PURPURA
     Dates: start: 20080924, end: 20080924
  3. PREDNISOLONE [Concomitant]
  4. PLAQUENIL [Concomitant]
  5. FOLIC ACID [Concomitant]
  6. LEVAQUIN [Concomitant]
  7. ZYRTEC [Concomitant]
  8. LEVOXYL [Concomitant]
  9. SYNTHROID [Concomitant]
  10. ZESTRIL [Concomitant]
  11. ZOSYN [Concomitant]
  12. CALCIUM CARBONATE [Concomitant]

REACTIONS (13)
  - ASTHENIA [None]
  - ATELECTASIS [None]
  - BLOOD BILIRUBIN INCREASED [None]
  - BLOOD UREA INCREASED [None]
  - CHILLS [None]
  - CHROMATURIA [None]
  - HAEMOGLOBIN DECREASED [None]
  - HAEMOGLOBINURIA [None]
  - HAEMOLYSIS [None]
  - HEADACHE [None]
  - LUNG INFILTRATION [None]
  - MUSCULOSKELETAL DISCOMFORT [None]
  - PNEUMONIA [None]
